FAERS Safety Report 25174905 (Version 1)
Quarter: 2025Q2

REPORT INFORMATION
  Report Type: Spontaneous
  Country: US (occurrence: US)
  Receive Date: 20250408
  Receipt Date: 20250408
  Transmission Date: 20250716
  Serious: No
  Sender: DR REDDYS
  Company Number: US-DRL-USA-USA/2025/03/004590

PATIENT
  Age: 79 Year
  Sex: Male

DRUGS (2)
  1. ATORVASTATIN [Suspect]
     Active Substance: ATORVASTATIN
     Indication: Hyperlipidaemia
  2. EZETIMIBE [Suspect]
     Active Substance: EZETIMIBE
     Indication: Hyperlipidaemia

REACTIONS (1)
  - Rebound effect [Recovered/Resolved]
